FAERS Safety Report 7945708-6 (Version None)
Quarter: 2011Q4

REPORT INFORMATION
  Report Type: 
  Country: None (occurrence: None)
  Receive Date: 20111129
  Receipt Date: 20110207
  Transmission Date: 20120403
  Serious: Yes (Other)
  Sender: FDA-Public Use
  Company Number: US-MYLANLABS-2011S1002820

PATIENT
  Age: 47 Year
  Sex: Female

DRUGS (2)
  1. CLONAZEPAM [Suspect]
     Indication: CONVULSION
  2. CLONAZEPAM [Suspect]

REACTIONS (2)
  - DRUG INEFFECTIVE [None]
  - CONVULSION [None]
